FAERS Safety Report 15950199 (Version 1)
Quarter: 2019Q1

REPORT INFORMATION
  Report Type: Spontaneous
  Country: US (occurrence: US)
  Receive Date: 20190211
  Receipt Date: 20190211
  Transmission Date: 20190417
  Serious: Yes (Hospitalization)
  Sender: FDA-Public Use
  Company Number: US-009507513-1902USA002297

PATIENT
  Age: 55 Year
  Sex: Male

DRUGS (2)
  1. KEYTRUDA [Suspect]
     Active Substance: PEMBROLIZUMAB
     Indication: LUNG CANCER METASTATIC
     Dosage: UNK, Q3W
     Route: 042
     Dates: start: 20190102, end: 20190102
  2. CARBOPLATIN. [Suspect]
     Active Substance: CARBOPLATIN
     Dosage: UNK
     Dates: start: 20190102

REACTIONS (2)
  - Memory impairment [Not Recovered/Not Resolved]
  - Confusional state [Not Recovered/Not Resolved]

NARRATIVE: CASE EVENT DATE: 201901
